FAERS Safety Report 18694660 (Version 1)
Quarter: 2021Q1

REPORT INFORMATION
  Report Type: Spontaneous
  Country: US (occurrence: US)
  Receive Date: 20210104
  Receipt Date: 20210104
  Transmission Date: 20210419
  Serious: No
  Sender: FDA-Public Use
  Company Number: US-TARO-2019TAR00770

PATIENT
  Sex: Male
  Weight: 72.56 kg

DRUGS (9)
  1. NYSTOP [Suspect]
     Active Substance: NYSTATIN
     Dosage: UNK
     Route: 061
     Dates: start: 201910, end: 201911
  2. TRETINOIN. [Suspect]
     Active Substance: TRETINOIN
     Indication: TRANSIENT ACANTHOLYTIC DERMATOSIS
     Dosage: ^A SIZE OF TWO PEAS^, 1X/DAY
     Route: 061
     Dates: start: 2019, end: 2019
  3. TRETINOIN. [Suspect]
     Active Substance: TRETINOIN
     Dosage: ^A SIZE OF TWO PEAS^, 1X/DAY
     Route: 061
     Dates: start: 2019, end: 201910
  4. HYDROCORTISONE CREAM [Suspect]
     Active Substance: HYDROCORTISONE
     Indication: TRANSIENT ACANTHOLYTIC DERMATOSIS
     Dosage: UNK
     Route: 061
     Dates: start: 201910, end: 201911
  5. NYSTOP [Suspect]
     Active Substance: NYSTATIN
     Dosage: UNK
     Route: 061
     Dates: start: 201911
  6. NYSTOP [Suspect]
     Active Substance: NYSTATIN
     Dosage: UNK
     Dates: start: 201911
  7. NYSTOP [Suspect]
     Active Substance: NYSTATIN
     Indication: TRANSIENT ACANTHOLYTIC DERMATOSIS
     Dosage: UNK
     Route: 061
     Dates: start: 201910, end: 201911
  8. UNSPECIFIED ENLARGE PROSTATE MEDICATION [Concomitant]
     Dosage: UNK
  9. UNSPECIFIED ANTI?ITCH CREAM [Concomitant]
     Dosage: UNK

REACTIONS (4)
  - Therapeutic response unexpected [Not Recovered/Not Resolved]
  - Product dose omission issue [Recovered/Resolved]
  - Drug ineffective for unapproved indication [Recovered/Resolved]
  - Drug ineffective [Recovered/Resolved]

NARRATIVE: CASE EVENT DATE: 2019
